FAERS Safety Report 9767991 (Version 1)
Quarter: 2013Q4

REPORT INFORMATION
  Report Type: Spontaneous
  Country: US (occurrence: None)
  Receive Date: 20131217
  Receipt Date: 20131217
  Transmission Date: 20140711
  Serious: Yes (Hospitalization)
  Sender: FDA-Public Use
  Company Number: 2012BAX019228

PATIENT
  Sex: Female

DRUGS (1)
  1. GAMMAGARD LIQUID (IMMUNOGLOBULIN, NORMAL HUMAN)(SOLUTION FOR INFUSION) [Suspect]
     Indication: HYPERGAMMAGLOBULINAEMIA
     Dosage: INTRAVENOUS (NOT OTHERWISE SPECIFIED)? ? ? ? ? ? ?

REACTIONS (8)
  - Dyspnoea [None]
  - Headache [None]
  - Migraine [None]
  - Chills [None]
  - Tremor [None]
  - Pyrexia [None]
  - Malaise [None]
  - Dyspnoea [None]
